FAERS Safety Report 5187094-3 (Version None)
Quarter: 2006Q4

REPORT INFORMATION
  Report Type: 
  Country: None (occurrence: None)
  Receive Date: 20061214
  Receipt Date: 20061110
  Transmission Date: 20070319
  Serious: Yes (Hospitalization)
  Sender: FDA-Public Use
  Company Number: PIER407

PATIENT
  Age: 50 Year
  Sex: Male

DRUGS (5)
  1. NAVELBINE [Suspect]
     Indication: LUNG SQUAMOUS CELL CARCINOMA STAGE UNSPECIFIED
     Dosage: 25 MG/M2 IV
     Route: 042
     Dates: start: 20050801, end: 20051001
  2. CISPLATIN [Suspect]
     Indication: LUNG SQUAMOUS CELL CARCINOMA STAGE UNSPECIFIED
     Dosage: 40 MG/M2 IV
     Route: 042
     Dates: start: 20041101, end: 20050201
  3. DOCETAXEL [Suspect]
     Indication: LUNG SQUAMOUS CELL CARCINOMA STAGE UNSPECIFIED
     Dosage: 40 MG/M2 IV
     Route: 042
     Dates: start: 20041101, end: 20050201
  4. PACLITAXEL [Suspect]
     Indication: LUNG SQUAMOUS CELL CARCINOMA STAGE UNSPECIFIED
     Dosage: 175 MG/M2 IV
     Route: 042
     Dates: start: 20050601
  5. CARBOPLATIN [Suspect]
     Dates: start: 20050501

REACTIONS (1)
  - TRANSIENT ISCHAEMIC ATTACK [None]
